FAERS Safety Report 7977826-0 (Version None)
Quarter: 2011Q4

REPORT INFORMATION
  Report Type: 
  Country: None (occurrence: None)
  Receive Date: 20111214
  Receipt Date: 20111205
  Transmission Date: 20120403
  Serious: Yes (Other)
  Sender: FDA-Public Use
  Company Number: US-AMGEN-USASP2011065049

PATIENT
  Age: 73 Year
  Sex: Male
  Weight: 73.469 kg

DRUGS (16)
  1. TENORMIN [Concomitant]
     Indication: HYPERTENSION
     Dosage: 50 MG, QD
     Route: 048
  2. FUROSEMIDE [Suspect]
     Dosage: 80 MG, UNK
  3. FERROUS GLUCONATE [Concomitant]
     Dosage: UNK
     Route: 048
  4. FUROSEMIDE [Suspect]
     Dosage: 40 MG, UNK
  5. PROCARDIA                          /00340701/ [Concomitant]
     Indication: HYPERTENSION
     Dosage: 90 MG, QD
     Route: 048
     Dates: start: 20111004
  6. KLONOPIN [Concomitant]
     Indication: BLOOD PRESSURE
     Dosage: 0.2 MG, QD
     Route: 048
  7. LANTUS [Concomitant]
     Indication: DIABETES MELLITUS
     Dosage: 10 IU, PRN
     Route: 058
     Dates: start: 20110701
  8. RENA-VITE [Concomitant]
     Dosage: UNK
     Route: 048
  9. LASIX [Concomitant]
     Dosage: 80 MG, BID
     Dates: start: 20111205
  10. PROCRIT [Suspect]
     Indication: ANAEMIA
     Dosage: 10000 IU, UNK
     Route: 058
     Dates: start: 20111202
  11. HYTRIN [Concomitant]
     Indication: BLOOD PRESSURE
     Dosage: 2 MG, QD
     Route: 048
  12. LASIX [Concomitant]
     Indication: FLUID RETENTION
     Dosage: 40 MG, BID
     Route: 048
     Dates: start: 20110901
  13. GLIPIZIDE [Concomitant]
     Indication: DIABETES MELLITUS
     Dosage: 20 MG, BID
     Route: 048
  14. SENNAPLUS [Concomitant]
     Indication: CONSTIPATION
     Dosage: UNK
  15. PRAZOSIN HCL [Concomitant]
     Indication: HYPERTENSION
     Dosage: 2 MG, QD
     Route: 048
     Dates: start: 20110601
  16. CLONIDINE [Concomitant]
     Indication: HYPERTENSION
     Dosage: 0.2 MG, QD
     Route: 048
     Dates: start: 20110601

REACTIONS (7)
  - BLOOD GLUCOSE INCREASED [None]
  - RESPIRATORY RATE INCREASED [None]
  - OEDEMA PERIPHERAL [None]
  - HEART RATE DECREASED [None]
  - HYPOTENSION [None]
  - DYSPNOEA [None]
  - MALAISE [None]
